FAERS Safety Report 8587336-8 (Version None)
Quarter: 2012Q3

REPORT INFORMATION
  Report Type: 
  Country: None (occurrence: None)
  Receive Date: 20120810
  Receipt Date: 20120417
  Transmission Date: 20120928
  Serious: No
  Sender: FDA-Public Use
  Company Number: US-ASTRAZENECA-2012SE25424

PATIENT
  Age: 67 Year
  Sex: Female

DRUGS (9)
  1. ANASTROZOLE [Suspect]
     Route: 048
  2. CALCIUM CARBONATE [Concomitant]
  3. LIPITOR [Concomitant]
  4. METOPROLOL TARTRATE [Concomitant]
  5. COZAAR [Concomitant]
  6. ASPIRIN [Concomitant]
  7. GLIPIZIDE [Concomitant]
  8. METFORMIN HYDROCHLORIDE [Concomitant]
  9. VITAMIN D [Concomitant]

REACTIONS (1)
  - ADVERSE DRUG REACTION [None]
